FAERS Safety Report 10157906 (Version 2)
Quarter: 2014Q2

REPORT INFORMATION
  Report Type: Spontaneous
  Country: CH (occurrence: CH)
  Receive Date: 20140507
  Receipt Date: 20140520
  Transmission Date: 20141212
  Serious: Yes (Hospitalization)
  Sender: FDA-Public Use
  Company Number: CH-ELI_LILLY_AND_COMPANY-CH201404009777

PATIENT
  Age: 51 Year
  Sex: Female
  Weight: 117 kg

DRUGS (4)
  1. EFIENT [Suspect]
     Indication: ACUTE CORONARY SYNDROME
     Dosage: 60 MG, SINGLE
     Route: 048
     Dates: start: 20120401, end: 20120401
  2. EFIENT [Suspect]
     Dosage: 10 MG, QD
     Route: 048
     Dates: start: 20120402
  3. ACETYLSALICYLIC ACID [Concomitant]
     Dosage: 300-500 MG LOADING DOSE
     Route: 048
  4. ACETYLSALICYLIC ACID [Concomitant]
     Dosage: 100 MG, QD
     Route: 048

REACTIONS (1)
  - Peripheral artery stenosis [Recovered/Resolved]
